FAERS Safety Report 17347374 (Version 1)
Quarter: 2020Q1

REPORT INFORMATION
  Report Type: Other
  Country: FR (occurrence: FR)
  Receive Date: 20200130
  Receipt Date: 20200130
  Transmission Date: 20200409
  Serious: Yes (Hospitalization, Other)
  Sender: FDA-Public Use
  Company Number: FR-APOTEX-2020AP007160

PATIENT
  Age: 80 Year
  Sex: Female

DRUGS (2)
  1. NORSET [Suspect]
     Active Substance: MIRTAZAPINE
     Indication: ANXIETY
     Dosage: 1 DF, QD
     Route: 048
     Dates: start: 20181130, end: 20181201
  2. DEROXAT [Suspect]
     Active Substance: PAROXETINE HYDROCHLORIDE
     Indication: ANXIETY
     Dosage: 1 DF, QD
     Route: 048
     Dates: start: 20181113, end: 20181130

REACTIONS (3)
  - Inappropriate antidiuretic hormone secretion [Not Recovered/Not Resolved]
  - Hyponatraemia [Not Recovered/Not Resolved]
  - Hypoosmolar state [Not Recovered/Not Resolved]

NARRATIVE: CASE EVENT DATE: 20181201
